FAERS Safety Report 4946311-2 (Version None)
Quarter: 2006Q1

REPORT INFORMATION
  Report Type: 
  Country: None (occurrence: None)
  Receive Date: 20060316
  Receipt Date: 20060316
  Transmission Date: 20060701
  Serious: Yes (Death)
  Sender: FDA-Public Use
  Company Number: None

PATIENT
  Age: 66 Year
  Sex: Male
  Weight: 81.6475 kg

DRUGS (3)
  1. ENBREL [Suspect]
     Indication: RHEUMATOID ARTHRITIS
     Dosage: ONCE A WEEK SC INJ
     Route: 058
  2. ASPIRIN [Concomitant]
  3. TYLENOL [Concomitant]

REACTIONS (10)
  - DIALYSIS [None]
  - GENERAL PHYSICAL HEALTH DETERIORATION [None]
  - HEPATIC FAILURE [None]
  - INFECTION IN AN IMMUNOCOMPROMISED HOST [None]
  - MALAISE [None]
  - PANCREATIC INSUFFICIENCY [None]
  - PHARYNGOLARYNGEAL PAIN [None]
  - PNEUMONIA [None]
  - RENAL FAILURE [None]
  - VIRAL INFECTION [None]
